FAERS Safety Report 8851080 (Version 1)
Quarter: 2012Q4

REPORT INFORMATION
  Report Type: 
  Country: US (occurrence: US)
  Receive Date: 20121019
  Receipt Date: 20121019
  Transmission Date: 20130627
  Serious: Yes (Other)
  Sender: FDA-Public Use
  Company Number: US-PFIZER INC-2012257750

PATIENT
  Age: 67 Year
  Sex: Male
  Weight: 100 kg

DRUGS (2)
  1. TIKOSYN [Suspect]
     Indication: HEART RATE INCREASED
     Dosage: 500 ug, 2x/day
     Dates: start: 2010
  2. COMBIVENT [Suspect]
     Indication: RESPIRATORY DISORDER
     Dosage: 1 or 2 puffs every 4 to 6 hours

REACTIONS (1)
  - Respiratory disorder [Not Recovered/Not Resolved]
